FAERS Safety Report 9207150 (Version 1)
Quarter: 2013Q1

REPORT INFORMATION
  Report Type: Spontaneous
  Country: US (occurrence: None)
  Receive Date: 20120731
  Receipt Date: 20120731
  Transmission Date: 20140127
  Serious: No
  Sender: FDA-Public Use
  Company Number: 2012MZ000303

PATIENT
  Age: 73 Year
  Sex: Female

DRUGS (2)
  1. XEOMIN [Suspect]
     Indication: BLEPHAROSPASM
     Dosage: 150 U
     Dates: end: 20120229
  2. SYNTHROID [Concomitant]

REACTIONS (3)
  - Wheezing [None]
  - Drug ineffective [None]
  - Extraocular muscle paresis [None]
